FAERS Safety Report 6664982-X (Version None)
Quarter: 2010Q1

REPORT INFORMATION
  Report Type: 
  Country: None (occurrence: None)
  Receive Date: 20100331
  Receipt Date: 20100322
  Transmission Date: 20100710
  Serious: Yes (Death, Hospitalization)
  Sender: FDA-Public Use
  Company Number: SPV1-2010-00545

PATIENT
  Age: 26 Year
  Sex: Male
  Weight: 38.3 kg

DRUGS (1)
  1. ELAPRASE [Suspect]
     Indication: MUCOPOLYSACCHARIDOSIS II
     Dosage: 0.5 MG/KG, 1X/WEEK, IV DRIP
     Route: 041
     Dates: start: 20090407, end: 20100308

REACTIONS (3)
  - BONE MARROW TRANSPLANT [None]
  - POST PROCEDURAL PNEUMONIA [None]
  - PYREXIA [None]
